FAERS Safety Report 19511663 (Version 1)
Quarter: 2021Q3

REPORT INFORMATION
  Report Type: Spontaneous
  Country: JP (occurrence: JP)
  Receive Date: 20210709
  Receipt Date: 20210709
  Transmission Date: 20211014
  Serious: Yes (Hospitalization, Other)
  Sender: FDA-Public Use
  Company Number: JP-INSUD PHARMA-2106JP00727

PATIENT
  Age: 35 Year
  Sex: Male

DRUGS (1)
  1. TESTOSTERONE. [Suspect]
     Active Substance: TESTOSTERONE
     Indication: GENDER DYSPHORIA
     Dosage: 125?250 MG INJECTIONS EVERY 3 WEEKS FOR 9 YEARS
     Route: 030

REACTIONS (6)
  - Chronic inflammatory demyelinating polyradiculoneuropathy [Recovered/Resolved]
  - Muscular weakness [Recovered/Resolved]
  - Neurotoxicity [Recovered/Resolved]
  - Hypoaesthesia [Recovered/Resolved]
  - Apoptosis [Unknown]
  - Demyelination [Unknown]
